FAERS Safety Report 21578939 (Version 1)
Quarter: 2022Q4

REPORT INFORMATION
  Report Type: Spontaneous
  Country: US (occurrence: US)
  Receive Date: 20221110
  Receipt Date: 20221110
  Transmission Date: 20230112
  Serious: No
  Sender: FDA-Public Use
  Company Number: US-SA-SAC20221103000446

PATIENT
  Sex: Female
  Weight: 35 kg

DRUGS (1)
  1. DUPIXENT [Suspect]
     Active Substance: DUPILUMAB
     Indication: Dermatitis atopic
     Dosage: 200 MG QOW
     Route: 058

REACTIONS (4)
  - Dermatitis atopic [Unknown]
  - Pruritus [Unknown]
  - Urticaria [Unknown]
  - Erythema [Unknown]
